FAERS Safety Report 19178530 (Version 6)
Quarter: 2021Q3

REPORT INFORMATION
  Report Type: Report from Study
  Country: US (occurrence: US)
  Receive Date: 20210426
  Receipt Date: 20210712
  Transmission Date: 20211014
  Serious: Yes (Other)
  Sender: FDA-Public Use
  Company Number: US-AGIOS-2104US02699

PATIENT

DRUGS (2)
  1. DEXAMETHASONE. [Concomitant]
     Active Substance: DEXAMETHASONE
     Route: 065
  2. TIBSOVO [Suspect]
     Active Substance: IVOSIDENIB
     Indication: ACUTE MYELOID LEUKAEMIA
     Dosage: 250 MILLIGRAM, QD
     Route: 048
     Dates: start: 20210407

REACTIONS (16)
  - Platelet count increased [Unknown]
  - Chest pain [Unknown]
  - Off label use [Unknown]
  - Pain [Unknown]
  - Fatigue [Unknown]
  - Back pain [Unknown]
  - Red blood cell count abnormal [Unknown]
  - Headache [Unknown]
  - Cataract [Unknown]
  - Body temperature increased [Unknown]
  - Nausea [Unknown]
  - Choking [Unknown]
  - Productive cough [Unknown]
  - Eosinophil count increased [Unknown]
  - Haemoglobin abnormal [Unknown]
  - Arthralgia [Unknown]

NARRATIVE: CASE EVENT DATE: 20210407
